FAERS Safety Report 26116082 (Version 1)
Quarter: 2025Q4

REPORT INFORMATION
  Report Type: Spontaneous
  Country: US (occurrence: US)
  Receive Date: 20251203
  Receipt Date: 20251203
  Transmission Date: 20260118
  Serious: No
  Sender: PL DEVELOPMENTS
  Company Number: US-P+L Devolo-2189699

PATIENT
  Sex: Female

DRUGS (1)
  1. NICOTINE [Suspect]
     Active Substance: NICOTINE
     Indication: Product used for unknown indication

REACTIONS (3)
  - Discomfort [Unknown]
  - Burning sensation [Unknown]
  - Therapeutic product effect decreased [Unknown]
